FAERS Safety Report 9140828 (Version 2)
Quarter: 2013Q1

REPORT INFORMATION
  Report Type: Spontaneous
  Country: CA (occurrence: CA)
  Receive Date: 20130305
  Receipt Date: 20130311
  Transmission Date: 20140127
  Serious: Yes (Death, Hospitalization)
  Sender: FDA-Public Use
  Company Number: CA-009507513-1303CAN001204

PATIENT
  Sex: Male

DRUGS (2)
  1. VICTRELIS [Suspect]
     Indication: HEPATITIS C
     Dosage: UNK
     Route: 048
     Dates: start: 201208, end: 20130220
  2. PEGETRON [Suspect]
     Indication: HEPATITIS C
     Dosage: UNK
     Route: 058
     Dates: start: 201208, end: 201302

REACTIONS (6)
  - Death [Fatal]
  - Lung infection [Fatal]
  - Lower respiratory tract inflammation [Fatal]
  - Dyspnoea [Fatal]
  - Asthenia [Unknown]
  - Dyspnoea [Unknown]
